FAERS Safety Report 24395682 (Version 1)
Quarter: 2024Q4

REPORT INFORMATION
  Report Type: Spontaneous
  Country: US (occurrence: US)
  Receive Date: 20241004
  Receipt Date: 20241004
  Transmission Date: 20250115
  Serious: Yes (Hospitalization)
  Sender: AUROBINDO
  Company Number: US-AUROBINDO-AUR-APL-2024-047231

PATIENT
  Age: 44 Year
  Sex: Male

DRUGS (8)
  1. MEROPENEM [Suspect]
     Active Substance: MEROPENEM
     Indication: Acinetobacter infection
     Dosage: 2 GRAM, TWO TIMES A DAY
     Route: 065
  2. AZTREONAM [Suspect]
     Active Substance: AZTREONAM
     Indication: Acinetobacter infection
     Dosage: 2 GRAM, TWO TIMES A DAY
     Route: 042
  3. CEFTAZIDIME [Suspect]
     Active Substance: CEFTAZIDIME
     Indication: Acinetobacter infection
     Dosage: UNK
     Route: 065
  4. CEFIDEROCOL [Suspect]
     Active Substance: CEFIDEROCOL
     Indication: Acinetobacter infection
     Dosage: 2 GRAM, 3 TIMES A DAY
     Route: 042
  5. AVIBACTAM SODIUM\CEFTAZIDIME [Concomitant]
     Active Substance: AVIBACTAM SODIUM\CEFTAZIDIME
     Indication: Acinetobacter infection
     Dosage: 1.25 GRAM, 3 TIMES A DAY
     Route: 042
  6. ERAVACYCLINE [Concomitant]
     Active Substance: ERAVACYCLINE
     Indication: Acinetobacter infection
     Dosage: 1 MILLIGRAM/KILOGRAM, TWO TIMES A DAY
     Route: 065
  7. POLYMYXIN B [Concomitant]
     Active Substance: POLYMYXIN B
     Indication: Acinetobacter infection
     Dosage: 15000 INTERNATIONAL UNIT/KILOGRAM, TWO TIMES A DAY
     Route: 065
  8. MINOCYCLINE [Concomitant]
     Active Substance: MINOCYCLINE HYDROCHLORIDE
     Indication: Acinetobacter infection
     Dosage: 200 MILLIGRAM, TWO TIMES A DAY
     Route: 042

REACTIONS (1)
  - Acquired gene mutation [Unknown]
